FAERS Safety Report 23854605 (Version 1)
Quarter: 2024Q2

REPORT INFORMATION
  Report Type: Spontaneous
  Country: US (occurrence: None)
  Receive Date: 20240514
  Receipt Date: 20240514
  Transmission Date: 20240715
  Serious: Yes (Death)
  Sender: FDA-Public Use
  Company Number: None

PATIENT
  Sex: Male

DRUGS (9)
  1. SIROLIMUS [Suspect]
     Active Substance: SIROLIMUS
     Indication: Immunodeficiency
     Dosage: OTHER FREQUENCY : D IN THE MORNING;?
     Route: 048
     Dates: start: 20150722
  2. ATORVASTATIN [Concomitant]
     Active Substance: ATORVASTATIN
  3. FUROSEMIDE POW [Concomitant]
  4. HYDRALAZINE [Concomitant]
     Active Substance: HYDRALAZINE HYDROCHLORIDE
  5. MAGNESIUM [Concomitant]
     Active Substance: MAGNESIUM
  6. MAGNESIUM [Concomitant]
     Active Substance: MAGNESIUM
  7. METOLAZONE [Concomitant]
     Active Substance: METOLAZONE
  8. VITAMINS [Concomitant]
     Active Substance: VITAMINS
  9. TAMSULOSIN [Concomitant]
     Active Substance: TAMSULOSIN

REACTIONS (1)
  - Death [None]
